FAERS Safety Report 24709539 (Version 3)
Quarter: 2025Q4

REPORT INFORMATION
  Report Type: Spontaneous
  Country: JP (occurrence: JP)
  Receive Date: 20241209
  Receipt Date: 20251002
  Transmission Date: 20260118
  Serious: Yes (Other)
  Sender: VIIV
  Company Number: JP-VIIV HEALTHCARE-JP2024JPN151617

PATIENT
  Age: 76 Year
  Sex: Male

DRUGS (4)
  1. MARAVIROC [Suspect]
     Active Substance: MARAVIROC
     Dosage: UNK
  2. TIVICAY [Suspect]
     Active Substance: DOLUTEGRAVIR SODIUM
     Dosage: UNK MG
  3. MAGNESIUM OXIDE [Suspect]
     Active Substance: MAGNESIUM OXIDE
     Dosage: UNK
  4. DESCOVY [Concomitant]
     Active Substance: EMTRICITABINE\TENOFOVIR ALAFENAMIDE FUMARATE
     Dosage: UNK

REACTIONS (4)
  - Immune reconstitution inflammatory syndrome [Recovered/Resolved]
  - Blood HIV RNA increased [Recovered/Resolved]
  - Product use issue [Unknown]
  - Off label use [Unknown]
